FAERS Safety Report 20716431 (Version 17)
Quarter: 2024Q4

REPORT INFORMATION
  Report Type: Spontaneous
  Country: CA (occurrence: CA)
  Receive Date: 20220416
  Receipt Date: 20241009
  Transmission Date: 20250115
  Serious: Yes (Other)
  Sender: CELLTRION
  Company Number: CA-CELLTRION INC.-2021CA019240

PATIENT

DRUGS (31)
  1. INFLECTRA [Suspect]
     Active Substance: INFLIXIMAB-DYYB
     Indication: Crohn^s disease
     Dosage: 475 MG, INDUCTION DOSES AT WEEK 0, 2 AND 6, THEN EVERY 8 WEEKS
     Route: 042
     Dates: start: 20180223, end: 20180407
  2. INFLECTRA [Suspect]
     Active Substance: INFLIXIMAB-DYYB
     Dosage: 980 MG, EVERY 8 WEEKS
     Route: 042
     Dates: start: 20180518, end: 20181105
  3. INFLECTRA [Suspect]
     Active Substance: INFLIXIMAB-DYYB
     Dosage: 1000 MG EVERY 6 WEEKS
     Route: 042
     Dates: start: 20181214
  4. INFLECTRA [Suspect]
     Active Substance: INFLIXIMAB-DYYB
     Dosage: 1000 MG EVERY 6 WEEKS
     Route: 042
     Dates: start: 20211029
  5. INFLECTRA [Suspect]
     Active Substance: INFLIXIMAB-DYYB
     Dosage: 1000 MG EVERY 6 WEEKS
     Route: 042
     Dates: start: 20211210
  6. INFLECTRA [Suspect]
     Active Substance: INFLIXIMAB-DYYB
     Dosage: 1000 MG EVERY 6 WEEKS
     Route: 042
     Dates: start: 20220121
  7. INFLECTRA [Suspect]
     Active Substance: INFLIXIMAB-DYYB
     Dosage: 1000 MG EVERY 6 WEEKS
     Route: 042
     Dates: start: 20220304
  8. INFLECTRA [Suspect]
     Active Substance: INFLIXIMAB-DYYB
     Dosage: 1000 MG EVERY 6 WEEKS
     Route: 042
     Dates: start: 20220414
  9. INFLECTRA [Suspect]
     Active Substance: INFLIXIMAB-DYYB
     Dosage: 1000 MG EVERY 6 WEEKS
     Route: 042
     Dates: start: 20220527
  10. INFLECTRA [Suspect]
     Active Substance: INFLIXIMAB-DYYB
     Dosage: 1000 MG EVERY 6 WEEKS
     Route: 042
     Dates: start: 20220819
  11. INFLECTRA [Suspect]
     Active Substance: INFLIXIMAB-DYYB
     Dosage: 1000 MG EVERY 6 WEEKS
     Route: 042
     Dates: start: 20220929
  12. INFLECTRA [Suspect]
     Active Substance: INFLIXIMAB-DYYB
     Dosage: 1000 MG EVERY 6 WEEKS
     Route: 042
     Dates: start: 20221111
  13. INFLECTRA [Suspect]
     Active Substance: INFLIXIMAB-DYYB
     Dosage: 1000 MG EVERY 6 WEEKS
     Route: 042
     Dates: start: 20221223
  14. INFLECTRA [Suspect]
     Active Substance: INFLIXIMAB-DYYB
     Dosage: 1000 MG EVERY 6 WEEKS
     Route: 042
     Dates: start: 20230203
  15. INFLECTRA [Suspect]
     Active Substance: INFLIXIMAB-DYYB
     Dosage: 1000 MG, EVERY 6 WEEKS
     Route: 042
     Dates: start: 20230317, end: 20230317
  16. INFLECTRA [Suspect]
     Active Substance: INFLIXIMAB-DYYB
     Dosage: 1000 MG (5 WEEKS AND 1 DAY)
     Route: 042
     Dates: start: 20240323
  17. INFLECTRA [Suspect]
     Active Substance: INFLIXIMAB-DYYB
     Dosage: 1000 MG, EVERY 6 WEEKS AND 5 DAYS (PRESCRIBED EVERY 6 WEEKS)
     Route: 042
     Dates: start: 20240510
  18. INFLECTRA [Suspect]
     Active Substance: INFLIXIMAB-DYYB
     Dosage: 1000 MG EVERY 6 WEEKS
     Route: 042
     Dates: start: 20240621
  19. INFLECTRA [Suspect]
     Active Substance: INFLIXIMAB-DYYB
     Dosage: 1000 MG EVERY 6 WEEKS
     Route: 042
     Dates: start: 20240802
  20. EMERGEN-C IMMUNE + [Concomitant]
     Dosage: 1 DF, DOSAGE NOT AVAILABLE
     Route: 065
     Dates: start: 2018
  21. EMERGEN-C IMMUNE + [Concomitant]
     Dosage: 1 DF, DOSAGE NOT AVAILABLE
     Route: 065
     Dates: start: 2018, end: 2018
  22. GAVISCON [ALUMINIUM HYDROXIDE;MAGNESIUM CARBONATE] [Concomitant]
     Dosage: 1 DF, DOSAGE NOT AVAILABLE
     Route: 065
     Dates: start: 20191105
  23. IRBESARTAN [Concomitant]
     Active Substance: IRBESARTAN
     Indication: Hypertension
     Dosage: 150 MG, 1X/DAY
     Route: 048
     Dates: start: 20200316
  24. NYSTATIN [Concomitant]
     Active Substance: NYSTATIN
     Dosage: 1 DF (SWISH AND SPIT)
     Dates: start: 20180329
  25. PANTOPRAZOLE SODIUM [Concomitant]
     Active Substance: PANTOPRAZOLE SODIUM
     Dosage: 20 MG, 1X/DAY
     Route: 048
     Dates: start: 2024
  26. PANTOPRAZOLE SODIUM [Concomitant]
     Active Substance: PANTOPRAZOLE SODIUM
     Dosage: 40 MG, 1X/DAY
     Route: 048
     Dates: start: 2024
  27. PANTOPRAZOLE SODIUM [Concomitant]
     Active Substance: PANTOPRAZOLE SODIUM
     Dosage: 20 MG, 1X/DAY
     Route: 048
     Dates: end: 2024
  28. PANTOPRAZOLE SODIUM [Concomitant]
     Active Substance: PANTOPRAZOLE SODIUM
     Dosage: 40 MG, 2X/DAY
     Route: 048
     Dates: start: 2024
  29. PENTASA [Concomitant]
     Active Substance: MESALAMINE
     Dosage: 1 DF, 2X/DAY,DOSAGE NOT AVAILABLE
     Route: 065
     Dates: start: 201701
  30. PENTASA [Concomitant]
     Active Substance: MESALAMINE
     Dosage: 1 DF, DOSAGE NOT AVAILABLE
     Route: 065
     Dates: start: 2018
  31. MESALAMINE [Concomitant]
     Active Substance: MESALAMINE
     Dosage: 3200 MG, 1X/DAY
     Dates: start: 2024

REACTIONS (16)
  - Uveitis [Recovered/Resolved]
  - Condition aggravated [Recovering/Resolving]
  - Blood pressure increased [Not Recovered/Not Resolved]
  - Arthralgia [Not Recovered/Not Resolved]
  - Aphthous ulcer [Recovered/Resolved]
  - Mouth ulceration [Recovered/Resolved]
  - Asthenia [Unknown]
  - Brain fog [Unknown]
  - Influenza like illness [Unknown]
  - Epistaxis [Unknown]
  - Abscess [Not Recovered/Not Resolved]
  - Fatigue [Unknown]
  - Off label use [Unknown]
  - Off label use [Unknown]
  - Intentional product use issue [Unknown]
  - Inappropriate schedule of product administration [Unknown]

NARRATIVE: CASE EVENT DATE: 20181214
